FAERS Safety Report 22267695 (Version 1)
Quarter: 2023Q2

REPORT INFORMATION
  Report Type: Spontaneous
  Country: FR (occurrence: FR)
  Receive Date: 20230430
  Receipt Date: 20230430
  Transmission Date: 20230722
  Serious: Yes (Other)
  Sender: FDA-Public Use
  Company Number: None

PATIENT
  Age: 26 Year
  Sex: Male

DRUGS (2)
  1. CHLORHEXIDINE GLUCONATE [Suspect]
     Active Substance: CHLORHEXIDINE GLUCONATE
     Indication: Product administration error
     Route: 047
     Dates: start: 20230403
  2. SODIUM CHLORIDE [Suspect]
     Active Substance: SODIUM CHLORIDE
     Dosage: MEDICATION NOT ADMINISTERED

REACTIONS (3)
  - Vision blurred [Recovering/Resolving]
  - Product administration error [Recovered/Resolved]
  - Eye irritation [Recovering/Resolving]

NARRATIVE: CASE EVENT DATE: 20230403
